FAERS Safety Report 9723800 (Version 1)
Quarter: 2013Q4

REPORT INFORMATION
  Report Type: Spontaneous
  Country: ES (occurrence: ES)
  Receive Date: 20131202
  Receipt Date: 20131202
  Transmission Date: 20140711
  Serious: Yes (Hospitalization)
  Sender: FDA-Public Use
  Company Number: ES-PFIZER INC-2013335336

PATIENT
  Age: 72 Year
  Sex: Female

DRUGS (1)
  1. ARTILOG [Suspect]
     Dosage: 200 MG, DAILY
     Route: 048
     Dates: start: 20120903, end: 20130902

REACTIONS (1)
  - Pulmonary oedema [Recovered/Resolved]
